FAERS Safety Report 21196587 (Version 3)
Quarter: 2023Q4

REPORT INFORMATION
  Report Type: Report from Study
  Country: US (occurrence: US)
  Receive Date: 20220810
  Receipt Date: 20231026
  Transmission Date: 20240109
  Serious: Yes (Death, Hospitalization, Other)
  Sender: FDA-Public Use
  Company Number: US-BIOGEN-2022BI01146056

PATIENT
  Age: 74 Year
  Sex: Female
  Weight: 64.4 kg

DRUGS (10)
  1. TYSABRI [Suspect]
     Active Substance: NATALIZUMAB
     Indication: Disease risk factor
     Route: 050
  2. TYSABRI [Suspect]
     Active Substance: NATALIZUMAB
     Dosage: 300 MG, ONCE, IV
     Route: 050
     Dates: start: 20180822
  3. TYSABRI [Suspect]
     Active Substance: NATALIZUMAB
     Dosage: 300 MG, ONCE, IV
     Route: 050
     Dates: start: 20180905
  4. PYRIMETHAMINE [Suspect]
     Active Substance: PYRIMETHAMINE
     Indication: Cerebral toxoplasmosis
     Route: 050
  5. PYRIMETHAMINE [Suspect]
     Active Substance: PYRIMETHAMINE
     Route: 050
  6. SULFADIAZINE [Suspect]
     Active Substance: SULFADIAZINE
     Indication: Cerebral toxoplasmosis
     Dosage: SULFADIAZINE 1500MG Q6H
     Route: 050
  7. SULFADIAZINE [Suspect]
     Active Substance: SULFADIAZINE
     Dosage: SULFADIAZINE 1.5G Q8H
     Route: 050
  8. LEUCOVORIN [Suspect]
     Active Substance: LEUCOVORIN\LEUCOVORIN CALCIUM
     Indication: Cerebral toxoplasmosis
     Dosage: FOLINIC ACID 25 MG DAILY FOR ABOUT 2 MONTHS
     Route: 050
  9. PREDNISONE [Suspect]
     Active Substance: PREDNISONE
     Indication: Product used for unknown indication
     Dosage: PREDNISONE 10 MG QOD
     Route: 050
  10. PREDNISONE [Suspect]
     Active Substance: PREDNISONE
     Dosage: PREDNISONE 5MG QOD
     Route: 050

REACTIONS (4)
  - Meningitis enterococcal [Fatal]
  - Enterococcal bacteraemia [Fatal]
  - Cerebral toxoplasmosis [Not Recovered/Not Resolved]
  - Urinary tract infection enterococcal [Recovered/Resolved]

NARRATIVE: CASE EVENT DATE: 20180917
